FAERS Safety Report 9964039 (Version 1)
Quarter: 2014Q1

REPORT INFORMATION
  Report Type: Spontaneous
  Country: FR (occurrence: FR)
  Receive Date: 20140305
  Receipt Date: 20140305
  Transmission Date: 20141002
  Serious: Yes (Hospitalization)
  Sender: FDA-Public Use
  Company Number: FR-AMGEN-FRASP2014014349

PATIENT
  Age: 83 Year
  Sex: Male

DRUGS (8)
  1. ARANESP [Suspect]
     Indication: ANAEMIA
     Dosage: 40 MUG, QD
     Route: 058
     Dates: start: 201305, end: 201311
  2. BISOPROLOL [Concomitant]
  3. SPIRIVA [Concomitant]
  4. PANTOPRAZOLE [Concomitant]
  5. ONBREZ [Concomitant]
  6. PRADAXA [Concomitant]
     Dosage: 150 MG, QD
     Route: 058
     Dates: start: 201307, end: 201311
  7. IMOVANE [Concomitant]
  8. TARDYFERON [Concomitant]

REACTIONS (1)
  - Pulmonary embolism [Unknown]
